FAERS Safety Report 9222867 (Version 1)
Quarter: 2013Q1

REPORT INFORMATION
  Report Type: Spontaneous
  Country: US (occurrence: None)
  Receive Date: 20120914
  Receipt Date: 20120914
  Transmission Date: 20140127
  Serious: Yes (Other)
  Sender: FDA-Public Use
  Company Number: JPI-P-020689

PATIENT
  Age: 41 Year
  Sex: Female

DRUGS (1)
  1. XYREM (500 MILLIGRAM/MILLILITERS, SOLUTION) (SODIUM OXYBATE) [Suspect]
     Indication: NARCOLEPSY
     Dosage: 2.25 GM, 2 IN 1 D
     Route: 048
     Dates: start: 20100916

REACTIONS (4)
  - Hypertension [None]
  - Vision blurred [None]
  - Drug dose omission [None]
  - Device failure [None]
